FAERS Safety Report 18534001 (Version 3)
Quarter: 2022Q2

REPORT INFORMATION
  Report Type: Report from Study
  Country: JP (occurrence: JP)
  Receive Date: 20201123
  Receipt Date: 20220406
  Transmission Date: 20220720
  Serious: Yes (Disabling, Other)
  Sender: FDA-Public Use
  Company Number: JP-JNJFOC-A-CH2018-172706

PATIENT
  Age: 70 Year
  Sex: Female

DRUGS (33)
  1. OPSUMIT [Suspect]
     Active Substance: MACITENTAN
     Indication: Pulmonary arterial hypertension
     Dosage: 10 MG, QD
     Route: 048
     Dates: start: 20170518, end: 20170617
  2. OPSUMIT [Suspect]
     Active Substance: MACITENTAN
     Dosage: 10 MG, QD
     Route: 048
     Dates: start: 20171011, end: 20180525
  3. OPSUMIT [Suspect]
     Active Substance: MACITENTAN
     Dosage: 10 MG, QD
     Route: 048
     Dates: start: 20180804
  4. UPTRAVI [Suspect]
     Active Substance: SELEXIPAG
     Indication: Pulmonary arterial hypertension
     Dosage: 0.2 MG, QD
     Route: 048
     Dates: start: 20170612
  5. UPTRAVI [Suspect]
     Active Substance: SELEXIPAG
     Dosage: 0.2 MG, BID
     Route: 048
     Dates: start: 20190513
  6. UPTRAVI [Suspect]
     Active Substance: SELEXIPAG
     Dosage: 0.4 MG, QD
     Route: 048
  7. UPTRAVI [Suspect]
     Active Substance: SELEXIPAG
     Dosage: 0.2 MG, QD
     Route: 048
     Dates: start: 20181208
  8. UPTRAVI [Suspect]
     Active Substance: SELEXIPAG
     Route: 048
     Dates: start: 20190518
  9. BERAPROST SODIUM [Suspect]
     Active Substance: BERAPROST SODIUM
     Indication: Pulmonary arterial hypertension
     Dosage: 20 MCG, TID
     Route: 048
     Dates: start: 20170517
  10. BERAPROST SODIUM [Suspect]
     Active Substance: BERAPROST SODIUM
     Dosage: 20 MCG, TID
     Route: 048
     Dates: start: 20171011, end: 20180108
  11. BERAPROST SODIUM [Suspect]
     Active Substance: BERAPROST SODIUM
     Dosage: 20 MCG, QD
     Route: 048
     Dates: start: 20180407, end: 20181207
  12. ADCIRCA [Suspect]
     Active Substance: TADALAFIL
     Indication: Pulmonary arterial hypertension
     Dosage: 40 MG, QD
     Route: 048
     Dates: start: 20170518, end: 20170615
  13. ADCIRCA [Suspect]
     Active Substance: TADALAFIL
     Dosage: 20 MG, QD
     Route: 048
     Dates: start: 20171011, end: 20180108
  14. ADCIRCA [Suspect]
     Active Substance: TADALAFIL
     Dosage: 20 MG, QD
     Route: 048
     Dates: start: 20180407, end: 20180711
  15. ASPIRIN [Suspect]
     Active Substance: ASPIRIN
     Indication: Product used for unknown indication
     Route: 048
  16. PRASUGREL HYDROCHLORIDE [Suspect]
     Active Substance: PRASUGREL HYDROCHLORIDE
     Indication: Product used for unknown indication
     Route: 048
  17. REBAMIPIDE [Concomitant]
     Active Substance: REBAMIPIDE
     Indication: Chronic gastritis
     Dosage: UNK
  18. REBAMIPIDE [Concomitant]
     Active Substance: REBAMIPIDE
     Dosage: 100 MG, BID
     Route: 048
     Dates: start: 20170518, end: 20170526
  19. CELLULASE\DIASTASE\LIPASE [Concomitant]
     Active Substance: CELLULASE\DIASTASE\LIPASE
     Indication: Chronic gastritis
     Dosage: 1 G, TID
     Route: 048
     Dates: start: 20170517
  20. CELLULASE\DIASTASE\LIPASE [Concomitant]
     Active Substance: CELLULASE\DIASTASE\LIPASE
     Dosage: 1 G, TID
     Route: 048
     Dates: start: 20171011
  21. CELLULASE\DIASTASE\LIPASE [Concomitant]
     Active Substance: CELLULASE\DIASTASE\LIPASE
     Dosage: 1 G, TID
     Route: 048
     Dates: start: 20180407
  22. MAGNESIUM OXIDE [Concomitant]
     Active Substance: MAGNESIUM OXIDE
     Indication: Constipation
     Dosage: 330 MG, TID
     Route: 048
     Dates: start: 20170517, end: 20170630
  23. ITOPRIDE [Concomitant]
     Active Substance: ITOPRIDE
     Indication: Chronic gastritis
     Dosage: 50 MG, TID
     Route: 048
     Dates: start: 20170517
  24. ITOPRIDE [Concomitant]
     Active Substance: ITOPRIDE
     Dosage: 50 MG, TID
     Route: 048
     Dates: start: 20180407
  25. TOCOPHERYL NICOTINATE, D-.ALPHA. [Concomitant]
     Active Substance: TOCOPHERYL NICOTINATE, D-.ALPHA.
     Indication: Peripheral vascular disorder
     Dosage: 150 MG, TID
     Route: 048
     Dates: start: 20170517
  26. TOCOPHERYL NICOTINATE, D-.ALPHA. [Concomitant]
     Active Substance: TOCOPHERYL NICOTINATE, D-.ALPHA.
     Dosage: 100 MG, TID
     Route: 048
     Dates: start: 20180407
  27. LYRICA [Concomitant]
     Active Substance: PREGABALIN
     Indication: Pain
     Dosage: 25 MG, QD
     Dates: end: 20170628
  28. LYRICA [Concomitant]
     Active Substance: PREGABALIN
     Indication: Necrosis
  29. NAUZELIN [Concomitant]
     Active Substance: DOMPERIDONE
     Indication: Nausea
     Dosage: 30 MG, QD
     Dates: start: 20170614, end: 20170628
  30. NAUZELIN [Concomitant]
     Active Substance: DOMPERIDONE
     Indication: Chronic gastritis
  31. TEPRENONE [Concomitant]
     Active Substance: TEPRENONE
     Indication: Chronic gastritis
     Dosage: 1 G, TID
     Route: 048
     Dates: start: 20190105
  32. SENNOSIDES A AND B [Concomitant]
     Active Substance: SENNOSIDES A AND B
     Indication: Constipation
     Route: 048
     Dates: start: 20190902, end: 20200209
  33. LINZESS [Concomitant]
     Active Substance: LINACLOTIDE
     Indication: Constipation
     Dates: start: 20200210

REACTIONS (15)
  - Pain [Not Recovered/Not Resolved]
  - Skin ulcer [Recovered/Resolved with Sequelae]
  - Leg amputation [Unknown]
  - Finger amputation [Recovered/Resolved with Sequelae]
  - Hypokalaemia [Recovered/Resolved]
  - Femoral neck fracture [Recovering/Resolving]
  - Gastrooesophageal reflux disease [Recovering/Resolving]
  - Nausea [Recovered/Resolved]
  - Drug ineffective for unapproved indication [Recovered/Resolved with Sequelae]
  - Mouth haemorrhage [Recovered/Resolved]
  - Wound [Recovered/Resolved]
  - Dizziness [Recovered/Resolved]
  - Iron deficiency anaemia [Recovered/Resolved]
  - Skin ulcer [Not Recovered/Not Resolved]
  - Chronic gastritis [Recovered/Resolved]

NARRATIVE: CASE EVENT DATE: 20170519
